FAERS Safety Report 9262416 (Version 1)
Quarter: 2013Q2

REPORT INFORMATION
  Report Type: Spontaneous
  Country: TR (occurrence: None)
  Receive Date: 20130425
  Receipt Date: 20130425
  Transmission Date: 20140414
  Serious: Yes (Hospitalization)
  Sender: FDA-Public Use
  Company Number: SYM-2013-02986

PATIENT
  Age: 65 Year
  Sex: Male

DRUGS (5)
  1. FLUOROURACIL (FLUOROURACIL) (FLUOROURACIL) [Suspect]
     Indication: BLADDER ADENOCARCINOMA STAGE UNSPECIFIED
  2. CISPLATIN [Suspect]
     Indication: BLADDER ADENOCARCINOMA STAGE UNSPECIFIED
  3. OXALIPLATIN (OXALIPLATIN) (OXALIPLATIN) [Suspect]
     Indication: BLADDER ADENOCARCINOMA STAGE UNSPECIFIED
  4. GEMCITABINE [Suspect]
     Indication: BLADDER ADENOCARCINOMA STAGE UNSPECIFIED
  5. LEUCOVORIN (FOLINIC ACID) (FOLINIC ACID) [Suspect]
     Indication: BLADDER ADENOCARCINOMA STAGE UNSPECIFIED

REACTIONS (4)
  - Drug ineffective [None]
  - Ascites [None]
  - General physical health deterioration [None]
  - Neuropathy peripheral [None]
